FAERS Safety Report 11822539 (Version 1)
Quarter: 2015Q4

REPORT INFORMATION
  Report Type: Spontaneous
  Country: GB (occurrence: GB)
  Receive Date: 20151210
  Receipt Date: 20151210
  Transmission Date: 20160305
  Serious: Yes (Life-Threatening)
  Sender: FDA-Public Use
  Company Number: GB-NOVOPROD-472416

PATIENT
  Age: 67 Year
  Sex: Female
  Weight: 56 kg

DRUGS (3)
  1. VAGIFEM [Suspect]
     Active Substance: ESTRADIOL
     Indication: CYSTOCELE
     Dosage: NIGHTLY FOR TWO WEEKS
     Route: 067
     Dates: start: 20150813, end: 20150827
  2. TELMISARTAN. [Concomitant]
     Active Substance: TELMISARTAN
  3. VAGIFEM [Suspect]
     Active Substance: ESTRADIOL
     Indication: OFF LABEL USE

REACTIONS (4)
  - Haemorrhagic stroke [Recovered/Resolved with Sequelae]
  - Hypertension [Unknown]
  - Off label use [Recovered/Resolved]
  - Fatigue [Unknown]

NARRATIVE: CASE EVENT DATE: 20150813
